FAERS Safety Report 6552084-2 (Version None)
Quarter: 2010Q1

REPORT INFORMATION
  Report Type: 
  Country: None (occurrence: None)
  Receive Date: 20100126
  Receipt Date: 20100115
  Transmission Date: 20100710
  Serious: Yes (Other)
  Sender: FDA-Public Use
  Company Number: US-WYE-H13096010

PATIENT
  Sex: Female

DRUGS (2)
  1. PREMPRO [Suspect]
     Indication: DRUG USE FOR UNKNOWN INDICATION
     Dosage: NOT PROVIDED
  2. LIPITOR [Suspect]
     Dosage: NOT PROVIDED
     Dates: end: 20100107

REACTIONS (8)
  - ARTHRALGIA [None]
  - CATARACT [None]
  - DRUG WITHDRAWAL SYNDROME [None]
  - HOT FLUSH [None]
  - METAMORPHOPSIA [None]
  - PAIN IN EXTREMITY [None]
  - PLATELET COUNT ABNORMAL [None]
  - THROMBOSIS [None]
